FAERS Safety Report 21401456 (Version 24)
Quarter: 2025Q4

REPORT INFORMATION
  Report Type: Spontaneous
  Country: CA (occurrence: CA)
  Receive Date: 20221003
  Receipt Date: 20251010
  Transmission Date: 20260119
  Serious: Yes (Other)
  Sender: CELLTRION
  Company Number: CA-CELLTRION INC.-2021CA018374

PATIENT

DRUGS (27)
  1. INFLECTRA [Suspect]
     Active Substance: INFLIXIMAB-DYYB
     Indication: Crohn^s disease
     Dosage: 300 MG, AT WEEK 0, 2, 6 THEN Q 8 WEEKS (Q 0, 2 AND 6 THEN Q 8 WEEKS)
     Dates: start: 20211220
  2. INFLECTRA [Suspect]
     Active Substance: INFLIXIMAB-DYYB
     Dosage: 300 MG, AT WEEK 0, 2, 6 THEN Q 8 WEEKS
     Dates: start: 20220106
  3. INFLECTRA [Suspect]
     Active Substance: INFLIXIMAB-DYYB
     Dosage: 300 MG, AT WEEK 0, 2, 6 THEN Q 8 WEEKS
     Dates: start: 20220201
  4. INFLECTRA [Suspect]
     Active Substance: INFLIXIMAB-DYYB
     Dosage: 300 MG, EVERY 8 WEEKS (AT WEEK 0, 2, 6 THEN Q 8 WEEKS)
     Dates: start: 20220725
  5. INFLECTRA [Suspect]
     Active Substance: INFLIXIMAB-DYYB
     Dosage: 300 MG, EVERY 8 WEEKS (AT WEEK 0, 2, 6 THEN Q 8 WEEKS)
     Dates: start: 20220920
  6. INFLECTRA [Suspect]
     Active Substance: INFLIXIMAB-DYYB
     Dosage: 300 MG AFTER 9 WEEKS AND 3 DAYS (PRESCRIBED EVERY 8 WEEKS)
     Dates: start: 20221125
  7. INFLECTRA [Suspect]
     Active Substance: INFLIXIMAB-DYYB
     Dosage: 300 MG, EVERY 8 WEEKS (AT WEEK 0, 2 AND 6 THEN Q 8 WEEKS)
     Dates: start: 20230118
  8. INFLECTRA [Suspect]
     Active Substance: INFLIXIMAB-DYYB
     Dosage: 300 MG, EVERY 8 WEEKS (AT WEEK 0, 2 AND 6 THEN Q 8 WEEKS)
     Dates: start: 20230315
  9. INFLECTRA [Suspect]
     Active Substance: INFLIXIMAB-DYYB
     Dosage: 300 MG, EVERY 8 WEEKS (AT WEEK 0, 2 AND 6 THEN Q 8 WEEKS)
     Dates: start: 20230510
  10. INFLECTRA [Suspect]
     Active Substance: INFLIXIMAB-DYYB
     Dosage: 300 MG, EVERY 8 WEEKS
     Dates: start: 20230705
  11. INFLECTRA [Suspect]
     Active Substance: INFLIXIMAB-DYYB
     Dosage: 300 MG, EVERY 8 WEEKS (Q 0, 2 AND 6 THEN Q 8 WEEKS)
     Dates: start: 20230905
  12. INFLECTRA [Suspect]
     Active Substance: INFLIXIMAB-DYYB
     Dosage: 500 MG, EVERY 6 WEEKS
     Dates: start: 20231016
  13. INFLECTRA [Suspect]
     Active Substance: INFLIXIMAB-DYYB
     Dosage: 500 MG, EVERY 6 WEEKS
     Dates: start: 20231127
  14. INFLECTRA [Suspect]
     Active Substance: INFLIXIMAB-DYYB
     Dosage: 500 MG, EVERY 6 WEEKS
     Dates: start: 20240108
  15. INFLECTRA [Suspect]
     Active Substance: INFLIXIMAB-DYYB
     Dosage: 500 MG AFTER 6 WEEKS AND 2 DAYS (PRESCRIBED EVERY 6 WEEKS)
     Dates: start: 20240221
  16. INFLECTRA [Suspect]
     Active Substance: INFLIXIMAB-DYYB
     Dosage: 500 MG, EVERY 6 WEEKS
     Dates: start: 20240408
  17. INFLECTRA [Suspect]
     Active Substance: INFLIXIMAB-DYYB
     Dosage: 500 MG, EVERY 6 WEEKS
     Dates: start: 20240514
  18. INFLECTRA [Suspect]
     Active Substance: INFLIXIMAB-DYYB
     Dosage: 500 MG, EVERY 6 WEEKS
     Dates: start: 20241209
  19. INFLECTRA [Suspect]
     Active Substance: INFLIXIMAB-DYYB
     Dosage: 500 MG, AFTER 6 WEEKS (EVERY 6 WEEKS)
     Dates: start: 20250120
  20. INFLECTRA [Suspect]
     Active Substance: INFLIXIMAB-DYYB
     Dosage: 500 MG, EVERY 6 WEEKS
     Dates: start: 20250303
  21. INFLECTRA [Suspect]
     Active Substance: INFLIXIMAB-DYYB
     Dosage: 500 MG, 6 WEEKS (EVERY 6 WEEKS)
     Dates: start: 20250414
  22. MARVELON [Concomitant]
     Active Substance: DESOGESTREL\ETHINYL ESTRADIOL
     Dosage: UNK
  23. PANTOPRAZOLE [Concomitant]
     Active Substance: PANTOPRAZOLE
     Dosage: UNK
  24. PREDNISONE [Concomitant]
     Active Substance: PREDNISONE
     Dosage: 20 MG TAPERING
  25. PREDNISONE [Concomitant]
     Active Substance: PREDNISONE
     Dosage: 1 DF, 20 MG TAPERING
     Route: 065
  26. PROGESTERONE [Concomitant]
     Active Substance: PROGESTERONE
     Dosage: UNK
  27. CHOLECALCIFEROL [Concomitant]
     Active Substance: CHOLECALCIFEROL
     Dosage: UNK

REACTIONS (30)
  - Anal fissure [Recovered/Resolved]
  - Joint injury [Not Recovered/Not Resolved]
  - Pain in extremity [Not Recovered/Not Resolved]
  - Sinusitis [Recovered/Resolved]
  - Arthralgia [Not Recovered/Not Resolved]
  - Drug level below therapeutic [Not Recovered/Not Resolved]
  - Drug level above therapeutic [Not Recovered/Not Resolved]
  - Condition aggravated [Not Recovered/Not Resolved]
  - Fatigue [Recovered/Resolved]
  - Chills [Recovered/Resolved]
  - Nasal congestion [Recovered/Resolved]
  - Cough [Recovered/Resolved]
  - Influenza like illness [Recovered/Resolved]
  - Arthralgia [Not Recovered/Not Resolved]
  - Rash erythematous [Not Recovered/Not Resolved]
  - Feeling abnormal [Unknown]
  - Skin disorder [Not Recovered/Not Resolved]
  - Pain of skin [Not Recovered/Not Resolved]
  - Amenorrhoea [Unknown]
  - Back pain [Unknown]
  - Fall [Recovering/Resolving]
  - Pharyngitis streptococcal [Recovered/Resolved]
  - Eye infection [Unknown]
  - Hordeolum [Unknown]
  - Malaise [Unknown]
  - Joint lock [Recovered/Resolved]
  - Joint stiffness [Recovered/Resolved]
  - Rash [Recovered/Resolved]
  - Off label use [Unknown]
  - Inappropriate schedule of product administration [Unknown]

NARRATIVE: CASE EVENT DATE: 20211220
